FAERS Safety Report 4512381-9 (Version None)
Quarter: 2004Q4

REPORT INFORMATION
  Report Type: 
  Country: None (occurrence: None)
  Receive Date: 20041123
  Receipt Date: 20041109
  Transmission Date: 20050328
  Serious: Yes (Other)
  Sender: FDA-Public Use
  Company Number: 2004AP05702

PATIENT
  Age: 32 Year
  Sex: Female

DRUGS (1)
  1. SEROQUEL [Suspect]
     Dosage: 200 MG DAILY PO
     Route: 048
     Dates: start: 20020701

REACTIONS (1)
  - LEUKOPENIA [None]
